FAERS Safety Report 7580447-5 (Version None)
Quarter: 2011Q2

REPORT INFORMATION
  Report Type: 
  Country: None (occurrence: None)
  Receive Date: 20110617
  Receipt Date: 20110601
  Transmission Date: 20111010
  Serious: Yes (Life-Threatening)
  Sender: FDA-Public Use
  Company Number: FK201101173

PATIENT
  Age: 55 Year
  Sex: Male

DRUGS (1)
  1. VOLUVEN [Suspect]
     Indication: HAEMODILUTION
     Dosage: INTRAVENOUS DRIP
     Route: 041
     Dates: start: 20110513, end: 20110513

REACTIONS (8)
  - MALAISE [None]
  - HEART RATE INCREASED [None]
  - HAEMATOCRIT DECREASED [None]
  - CARDIO-RESPIRATORY ARREST [None]
  - BRADYCARDIA [None]
  - LOSS OF CONSCIOUSNESS [None]
  - CYANOSIS [None]
  - JOINT CONTRACTURE [None]
